FAERS Safety Report 8767449 (Version 1)
Quarter: 2012Q4

REPORT INFORMATION
  Report Type: 
  Country: JP (occurrence: JP)
  Receive Date: 20120904
  Receipt Date: 20120904
  Transmission Date: 20130627
  Serious: Yes (Death, Other)
  Sender: FDA-Public Use
  Company Number: JP-BRISTOL-MYERS SQUIBB COMPANY-16921991

PATIENT
  Age: 9 Month
  Sex: Male

DRUGS (3)
  1. PARAPLATIN [Suspect]
     Indication: BRAIN NEOPLASM MALIGNANT
  2. IFOSFAMIDE [Suspect]
     Indication: BRAIN NEOPLASM MALIGNANT
  3. ETOPOSIDE [Suspect]
     Indication: BRAIN NEOPLASM MALIGNANT

REACTIONS (3)
  - Malignant neoplasm progression [Fatal]
  - CNS ventriculitis [Unknown]
  - Cystitis haemorrhagic [Unknown]
